FAERS Safety Report 13564200 (Version 3)
Quarter: 2018Q2

REPORT INFORMATION
  Report Type: Spontaneous
  Country: IT (occurrence: IT)
  Receive Date: 20170519
  Receipt Date: 20180423
  Transmission Date: 20180711
  Serious: Yes (Other)
  Sender: FDA-Public Use
  Company Number: IT-PFIZER INC-3009244

PATIENT

DRUGS (2)
  1. FUROSEMIDE. [Suspect]
     Active Substance: FUROSEMIDE
     Indication: DIURETIC THERAPY
     Dosage: UNK
  2. CISPLATIN. [Interacting]
     Active Substance: CISPLATIN
     Indication: COLORECTAL CANCER
     Dosage: UNK

REACTIONS (2)
  - Ototoxicity [Unknown]
  - Drug interaction [Unknown]
